FAERS Safety Report 21795694 (Version 3)
Quarter: 2023Q1

REPORT INFORMATION
  Report Type: Report from Study
  Country: US (occurrence: US)
  Receive Date: 20221229
  Receipt Date: 20230323
  Transmission Date: 20230418
  Serious: No
  Sender: FDA-Public Use
  Company Number: US-ABBVIE-4246438

PATIENT
  Age: 32 Year
  Sex: Female
  Weight: 93.439 kg

DRUGS (13)
  1. HUMIRA [Suspect]
     Active Substance: ADALIMUMAB
     Indication: Hidradenitis
     Dosage: DRUG END DATE-2022
     Route: 058
     Dates: start: 202204
  2. HUMIRA [Suspect]
     Active Substance: ADALIMUMAB
     Route: 058
     Dates: start: 20220301
  3. HUMIRA [Suspect]
     Active Substance: ADALIMUMAB
     Dosage: DRUG START DATE-2022
     Route: 058
  4. AZELASTINE [Concomitant]
     Active Substance: AZELASTINE
     Indication: Hypersensitivity
  5. MONTELUKAST [Concomitant]
     Active Substance: MONTELUKAST SODIUM
     Indication: Hypersensitivity
  6. BUDESONIDE\FORMOTEROL [Concomitant]
     Active Substance: BUDESONIDE\FORMOTEROL
     Indication: Asthma
  7. DAPSONE [Concomitant]
     Active Substance: DAPSONE
     Indication: Acne
  8. FAMOTIDINE [Concomitant]
     Active Substance: FAMOTIDINE
     Indication: Dyspepsia
  9. ALBUTEROL [Concomitant]
     Active Substance: ALBUTEROL
     Indication: Asthma
  10. ZINC [Concomitant]
     Active Substance: ZINC
     Indication: Supplementation therapy
  11. VITAMIN D [Concomitant]
     Active Substance: VITAMIN D NOS
     Indication: Vitamin D deficiency
  12. COENZYME Q10 [Concomitant]
     Active Substance: DIETARY SUPPLEMENT\UBIDECARENONE
     Indication: Abortion induced
     Dosage: NATURE MADE
  13. PROGESTERONE [Concomitant]
     Active Substance: PROGESTERONE
     Indication: Menstruation irregular

REACTIONS (11)
  - Hidradenitis [Unknown]
  - Insomnia [Recovered/Resolved]
  - Cellulitis [Recovered/Resolved]
  - Hidradenitis [Recovered/Resolved]
  - Dysstasia [Unknown]
  - Gait inability [Recovered/Resolved]
  - Drug ineffective [Recovered/Resolved]
  - Blood insulin increased [Not Recovered/Not Resolved]
  - Stress [Not Recovered/Not Resolved]
  - COVID-19 [Not Recovered/Not Resolved]
  - Hepatic steatosis [Unknown]

NARRATIVE: CASE EVENT DATE: 20221001
